FAERS Safety Report 16122649 (Version 1)
Quarter: 2019Q1

REPORT INFORMATION
  Report Type: Spontaneous
  Country: US (occurrence: US)
  Receive Date: 20190222
  Receipt Date: 20190222
  Transmission Date: 20190418
  Serious: Yes (Other)
  Sender: FDA-Public Use
  Company Number: None

PATIENT
  Age: 62 Year
  Sex: Female
  Weight: 40.82 kg

DRUGS (5)
  1. ATIVAN [Suspect]
     Active Substance: LORAZEPAM
     Indication: ANXIETY
     Dosage: ?          QUANTITY:0.5 MG MILLIGRAM(S);?
     Route: 048
     Dates: start: 20140512, end: 20190131
  2. VITAMIN B12 [Concomitant]
     Active Substance: CYANOCOBALAMIN
  3. VITAMIN D [Concomitant]
     Active Substance: CHOLECALCIFEROL
  4. CLONAZEPAM. [Concomitant]
     Active Substance: CLONAZEPAM
  5. VIT B6 COMPLEX [Concomitant]

REACTIONS (11)
  - Insomnia [None]
  - Dizziness [None]
  - Decreased appetite [None]
  - Seizure [None]
  - Irritability [None]
  - Withdrawal syndrome [None]
  - Migraine [None]
  - Dyspnoea [None]
  - Anger [None]
  - Nausea [None]
  - Pain [None]

NARRATIVE: CASE EVENT DATE: 20181222
